FAERS Safety Report 10723640 (Version 1)
Quarter: 2015Q1

REPORT INFORMATION
  Report Type: Spontaneous
  Country: CH (occurrence: None)
  Receive Date: 20150115
  Receipt Date: 20150115
  Transmission Date: 20150721
  Serious: Yes (Life-Threatening, Hospitalization, Other)
  Sender: FDA-Public Use
  Company Number: 20150010

PATIENT
  Age: 91 Year
  Sex: Female
  Weight: 66 kg

DRUGS (2)
  1. VENOFER [Suspect]
     Active Substance: IRON SUCROSE
     Indication: ANAEMIA
     Dates: start: 20141204, end: 20141204
  2. FERINJECT [Suspect]
     Active Substance: FERRIC CARBOXYMALTOSE
     Indication: ANAEMIA
     Dates: start: 20141204, end: 20141204

REACTIONS (3)
  - Dyskinesia [None]
  - Pulmonary oedema [None]
  - Pyrexia [None]

NARRATIVE: CASE EVENT DATE: 20141204
